FAERS Safety Report 6392435-5 (Version None)
Quarter: 2009Q4

REPORT INFORMATION
  Report Type: 
  Country: None (occurrence: None)
  Receive Date: 20091005
  Receipt Date: 20090925
  Transmission Date: 20100525
  Serious: Yes (Death)
  Sender: FDA-Public Use
  Company Number: OSCN-NO-0908L-0397

PATIENT
  Age: 63 Year
  Sex: Male

DRUGS (1)
  1. OMNISCAN [Suspect]
     Indication: DRUG USE FOR UNKNOWN INDICATION

REACTIONS (37)
  - ARTERIAL THROMBOSIS [None]
  - ARTERIOVENOUS FISTULA THROMBOSIS [None]
  - ASTHENIA [None]
  - BACTERIAL TOXAEMIA [None]
  - BALANCE DISORDER [None]
  - CAROTID ARTERY STENOSIS [None]
  - CEREBRAL INFARCTION [None]
  - CEREBROVASCULAR DISORDER [None]
  - COLITIS ISCHAEMIC [None]
  - DECREASED APPETITE [None]
  - DIALYSIS [None]
  - DIARRHOEA [None]
  - DISEASE PROGRESSION [None]
  - FAT EMBOLISM [None]
  - HAEMOGLOBIN DECREASED [None]
  - HEPATIC FIBROSIS [None]
  - INTERMITTENT CLAUDICATION [None]
  - LEFT VENTRICULAR HYPERTROPHY [None]
  - LEUKOCYTOSIS [None]
  - MALIGNANT NEOPLASM OF PLEURA [None]
  - MALNUTRITION [None]
  - NAUSEA [None]
  - NEPHROGENIC SYSTEMIC FIBROSIS [None]
  - PANCREATITIS CHRONIC [None]
  - PLEURAL EFFUSION [None]
  - PLEURAL FIBROSIS [None]
  - PLEURISY [None]
  - PYREXIA [None]
  - RENAL ARTERIOSCLEROSIS [None]
  - RENAL ARTERY STENOSIS [None]
  - RENAL ATROPHY [None]
  - RENAL FAILURE CHRONIC [None]
  - RETROPERITONEAL FIBROSIS [None]
  - TESTICULAR ATROPHY [None]
  - THROMBOCYTOSIS [None]
  - VOMITING [None]
  - WEIGHT DECREASED [None]
